FAERS Safety Report 9641396 (Version 2)
Quarter: 2013Q4

REPORT INFORMATION
  Report Type: Spontaneous
  Country: JP (occurrence: None)
  Receive Date: 20131021
  Receipt Date: 20131104
  Transmission Date: 20140711
  Serious: Yes (Hospitalization)
  Sender: FDA-Public Use
  Company Number: JP-013330

PATIENT
  Age: 85 Year
  Sex: Male
  Weight: 55 kg

DRUGS (19)
  1. DEGARELIX [Suspect]
     Indication: PROSTATE CANCER METASTATIC
     Route: 058
     Dates: start: 20130711, end: 20130711
  2. DENOSUMAB (DENOSUMAB) (RANMARK)) [Suspect]
     Indication: METASTASES TO BONE
     Route: 058
     Dates: start: 20130711, end: 20130711
  3. HARNAL [Concomitant]
  4. AVOLVE [Concomitant]
  5. BICALUTAMIDE [Concomitant]
  6. CALTAN [Concomitant]
  7. CALFINA [Concomitant]
  8. FOLICRON [Concomitant]
  9. PAXIL [Concomitant]
  10. TRAMADOL HYDROCHLORIDE AND ACETAMINOPHEN [Concomitant]
  11. MAGMITT [Concomitant]
  12. NICHIMALON [Concomitant]
  13. TAKEPRON [Concomitant]
  14. IFENPRODIL [Concomitant]
  15. BAYASPIRIN [Concomitant]
  16. LOXONIN [Concomitant]
  17. MUCOSTA [Concomitant]
  18. TRAZENTA [Concomitant]
  19. AMARYL [Concomitant]

REACTIONS (3)
  - Hypocalcaemia [None]
  - Drug interaction [None]
  - Osteolysis [None]
